FAERS Safety Report 15826813 (Version 9)
Quarter: 2019Q3

REPORT INFORMATION
  Report Type: Report from Study
  Country: US (occurrence: US)
  Receive Date: 20190115
  Receipt Date: 20190717
  Transmission Date: 20191004
  Serious: Yes (Death, Other)
  Sender: FDA-Public Use
  Company Number: PHEH2019US001311

PATIENT
  Age: 12 Year
  Sex: Female
  Weight: 37.7 kg

DRUGS (77)
  1. HYDRALAZINE [Concomitant]
     Active Substance: HYDRALAZINE HYDROCHLORIDE
     Indication: PRODUCT USED FOR UNKNOWN INDICATION
     Dosage: 3.5 MG, Q6H
     Route: 042
  2. ATIVAN [Concomitant]
     Active Substance: LORAZEPAM
     Indication: NAUSEA
     Dosage: UNK
     Route: 065
  3. HYDROXYZINE [Concomitant]
     Active Substance: HYDROXYZINE HYDROCHLORIDE
     Indication: NAUSEA
     Dosage: UNK
     Route: 065
  4. MILK THISTLE PLUS [Concomitant]
     Active Substance: DIETARY SUPPLEMENT\HERBALS\MILK THISTLE
     Indication: PROPHYLAXIS
     Dosage: UNK
     Route: 065
  5. ACETAMINOPHEN. [Concomitant]
     Active Substance: ACETAMINOPHEN
     Dosage: 500 MG, Q6H
     Route: 042
     Dates: start: 20190102, end: 20190104
  6. CALCIUM GLUCONATE. [Concomitant]
     Active Substance: CALCIUM GLUCONATE
     Indication: CAPILLARY DISORDER
     Dosage: 1000 MG, QD
     Route: 042
     Dates: start: 20190105, end: 20190107
  7. POTASSIUM CHLORIDE. [Concomitant]
     Active Substance: POTASSIUM CHLORIDE
     Dosage: 17 MEQ, ONCE/SINGLE
     Route: 042
     Dates: start: 20190109, end: 20190109
  8. PEPCID [Concomitant]
     Active Substance: FAMOTIDINE
     Indication: PRODUCT USED FOR UNKNOWN INDICATION
     Dosage: UNK
     Route: 065
  9. SULFAMETOXAZOL/TRIMETOPRIM [Concomitant]
     Active Substance: SULFAMETHOXAZOLE\TRIMETHOPRIM
     Indication: PRODUCT USED FOR UNKNOWN INDICATION
     Dosage: 90 MG, BID
     Route: 048
  10. VORICONAZOLE. [Concomitant]
     Active Substance: VORICONAZOLE
     Indication: PRODUCT USED FOR UNKNOWN INDICATION
     Dosage: 320 MG, UNK
     Route: 042
  11. LORATADINE. [Concomitant]
     Active Substance: LORATADINE
     Indication: HYPERSENSITIVITY
     Dosage: 5 MG, Q24H
     Route: 048
     Dates: start: 20181213
  12. GABAPENTIN. [Concomitant]
     Active Substance: GABAPENTIN
     Indication: PAIN
     Dosage: 400 MG, Q12H
     Route: 048
     Dates: start: 20181217
  13. ALLOPURINOL. [Concomitant]
     Active Substance: ALLOPURINOL
     Indication: BLOOD URIC ACID INCREASED
     Dosage: 300 MG, Q12H
     Route: 048
  14. MULTIVITAMINS [Concomitant]
     Active Substance: VITAMINS
     Indication: PRODUCT USED FOR UNKNOWN INDICATION
     Dosage: 1 ML, Q24H
     Route: 048
     Dates: start: 20181214, end: 20190105
  15. APROVEL [Concomitant]
     Active Substance: IRBESARTAN
     Indication: PRODUCT USED FOR UNKNOWN INDICATION
     Dosage: 1 DF, QD
     Route: 048
  16. FUROSEMIDE. [Concomitant]
     Active Substance: FUROSEMIDE
     Dosage: 10 MG, Q12H
     Route: 042
     Dates: start: 20190108
  17. LEVOFLOXACIN. [Concomitant]
     Active Substance: LEVOFLOXACIN
     Indication: PNEUMONIA
     Dosage: UNK
     Route: 065
     Dates: start: 20181224, end: 20190101
  18. MIRALAX [Concomitant]
     Active Substance: POLYETHYLENE GLYCOL 3350
     Indication: CONSTIPATION
     Dosage: UNK UNK, BID
     Route: 065
  19. ACETAMINOPHEN. [Concomitant]
     Active Substance: ACETAMINOPHEN
     Dosage: 400 MG, Q4H
     Route: 042
     Dates: start: 20190107, end: 20190107
  20. ACETAMINOPHEN. [Concomitant]
     Active Substance: ACETAMINOPHEN
     Dosage: 325 MG, Q4H
     Route: 042
     Dates: start: 20190107
  21. SULFAMETHOXAZOLE AND TRIMETHOPRIM [Concomitant]
     Active Substance: SULFAMETHOXAZOLE\TRIMETHOPRIM
     Indication: PROPHYLAXIS
     Dosage: 90 MG, UNK
     Route: 048
     Dates: start: 20181230
  22. VANCOMYCIN [Concomitant]
     Active Substance: VANCOMYCIN
     Dosage: 500 MG, Q6H
     Route: 042
     Dates: start: 20190103, end: 20190104
  23. GRANISETRON [Concomitant]
     Active Substance: GRANISETRON
     Indication: NAUSEA
     Dosage: 340 UG, Q12H
     Route: 042
     Dates: start: 20190108
  24. POTASSIUM CHLORIDE. [Concomitant]
     Active Substance: POTASSIUM CHLORIDE
     Dosage: 8 MEQ, ONCE/SINGLE
     Route: 042
     Dates: start: 20190106, end: 20190106
  25. POTASSIUM CHLORIDE. [Concomitant]
     Active Substance: POTASSIUM CHLORIDE
     Dosage: 8 MEQ, ONCE/SINGLE
     Route: 042
     Dates: start: 20190108, end: 20190108
  26. AMIKACIN. [Concomitant]
     Active Substance: AMIKACIN
     Indication: ANTIBIOTIC THERAPY
     Dosage: 85 MG, ONCE/SINGLE
     Route: 042
     Dates: start: 20190103, end: 20190103
  27. METOCLOPRAMIDE. [Concomitant]
     Active Substance: METOCLOPRAMIDE
     Indication: NAUSEA
     Dosage: 1.4 MG, Q6H
     Route: 042
     Dates: start: 20181224, end: 20190103
  28. REGLAN [Concomitant]
     Active Substance: METOCLOPRAMIDE HYDROCHLORIDE
     Indication: NAUSEA
     Dosage: UNK
     Route: 065
  29. ACETAMINOPHEN. [Concomitant]
     Active Substance: ACETAMINOPHEN
     Dosage: 480 MG, Q6H (ORAL LIQUID
     Route: 048
     Dates: start: 20190105, end: 20190106
  30. HYDROMORPHONE [Concomitant]
     Active Substance: HYDROMORPHONE
     Indication: PRODUCT USED FOR UNKNOWN INDICATION
     Dosage: UNK
     Route: 065
  31. LORAZEPAM. [Concomitant]
     Active Substance: LORAZEPAM
     Indication: NAUSEA
     Dosage: 0.5 MG, Q6H
     Route: 042
     Dates: start: 20181230, end: 20190107
  32. HYDROCORTISONE. [Concomitant]
     Active Substance: HYDROCORTISONE
     Dosage: 5 MG, Q24H
     Route: 048
  33. ALBUTEROL. [Concomitant]
     Active Substance: ALBUTEROL
     Indication: PRODUCT USED FOR UNKNOWN INDICATION
     Dosage: 2.5 MG, Q4H
     Route: 055
  34. SIMETHICONE (DIMETHICONE) [Concomitant]
     Active Substance: DIMETHICONE
     Indication: PRODUCT USED FOR UNKNOWN INDICATION
     Dosage: 40 MG, Q6H
     Route: 048
  35. BACTRIM [Concomitant]
     Active Substance: SULFAMETHOXAZOLE\TRIMETHOPRIM
     Indication: PROPHYLAXIS
     Dosage: UNK
     Route: 065
  36. ACETAMINOPHEN. [Concomitant]
     Active Substance: ACETAMINOPHEN
     Dosage: 400 MG, Q4H
     Route: 042
     Dates: start: 20190102, end: 20190103
  37. ACETAMINOPHEN. [Concomitant]
     Active Substance: ACETAMINOPHEN
     Dosage: 500 MG, Q6H
     Route: 042
     Dates: start: 20190104, end: 20190105
  38. POTASSIUM CHLORIDE. [Concomitant]
     Active Substance: POTASSIUM CHLORIDE
     Indication: PRODUCT USED FOR UNKNOWN INDICATION
     Dosage: 5 MEQ, ONCE/SINGLE
     Route: 042
     Dates: start: 20190105, end: 20190105
  39. POTASSIUM CHLORIDE. [Concomitant]
     Active Substance: POTASSIUM CHLORIDE
     Dosage: 8 MEQ, ONCE/SINGLE
     Route: 042
     Dates: start: 20190107, end: 20190107
  40. POTASSIUM CHLORIDE. [Concomitant]
     Active Substance: POTASSIUM CHLORIDE
     Dosage: 8 MEQ, ONCE/SINGLE
     Route: 042
     Dates: start: 20190110, end: 20190110
  41. ZANTAC [Concomitant]
     Active Substance: RANITIDINE HYDROCHLORIDE
     Indication: PRODUCT USED FOR UNKNOWN INDICATION
     Dosage: UNK
     Route: 065
  42. BLINATUMOMAB [Concomitant]
     Active Substance: BLINATUMOMAB
     Indication: CHEMOTHERAPY
     Route: 065
  43. CYTOXAN [Concomitant]
     Active Substance: CYCLOPHOSPHAMIDE
     Indication: CHEMOTHERAPY
     Dosage: UNK
     Route: 065
     Dates: start: 20181224, end: 20181225
  44. LINEZOLID. [Concomitant]
     Active Substance: LINEZOLID
     Indication: PRODUCT USED FOR UNKNOWN INDICATION
     Dosage: 340 MG, UNK
     Route: 042
     Dates: start: 20190102, end: 20190103
  45. ESCITALOPRAM [Concomitant]
     Active Substance: ESCITALOPRAM OXALATE
     Dosage: 2.5 MG, Q24H
     Route: 048
     Dates: start: 20190103, end: 20190103
  46. POLYETHYLENE GLYCOL [Concomitant]
     Active Substance: POLYETHYLENE GLYCOLS
     Indication: CONSTIPATION
     Dosage: 17 G, Q12H
     Route: 048
     Dates: start: 20181229, end: 20190102
  47. FUROSEMIDE. [Concomitant]
     Active Substance: FUROSEMIDE
     Indication: DIURETIC THERAPY
     Dosage: 20 MG, UNK
     Route: 042
  48. ACETAMINOPHEN. [Concomitant]
     Active Substance: ACETAMINOPHEN
     Indication: PYREXIA
     Dosage: 550 MG, ONCE/SINGLE
     Route: 042
     Dates: start: 20181231, end: 20181231
  49. ACETAMINOPHEN. [Concomitant]
     Active Substance: ACETAMINOPHEN
     Dosage: 500 MG, Q6H
     Route: 048
     Dates: start: 20190106, end: 20190107
  50. ALBUMIN [Concomitant]
     Active Substance: ALBUMIN HUMAN
     Dosage: 25 G, ONCE/SINGLE
     Route: 042
     Dates: start: 20190106, end: 20190106
  51. VANCOMYCIN [Concomitant]
     Active Substance: VANCOMYCIN
     Dosage: 750 MG, Q6H
     Route: 042
     Dates: start: 20190106, end: 20190107
  52. VANCOMYCIN [Concomitant]
     Active Substance: VANCOMYCIN
     Dosage: 550 MG, Q6H
     Route: 042
     Dates: start: 20190104, end: 20190104
  53. VANCOMYCIN [Concomitant]
     Active Substance: VANCOMYCIN
     Dosage: 680 MG, Q6H
     Route: 042
     Dates: start: 20190105, end: 20190106
  54. FLUDARABINE [Concomitant]
     Active Substance: FLUDARABINE PHOSPHATE
     Indication: CHEMOTHERAPY
     Dosage: UNK
     Route: 065
     Dates: start: 20181224, end: 20181227
  55. MEROPENEM. [Concomitant]
     Active Substance: MEROPENEM
     Indication: PRODUCT USED FOR UNKNOWN INDICATION
     Dosage: 750 MG, UNK
     Route: 042
     Dates: start: 20190102, end: 20190107
  56. ESCITALOPRAM [Concomitant]
     Active Substance: ESCITALOPRAM OXALATE
     Indication: ANXIETY
     Dosage: 5 MG, Q24H
     Route: 048
     Dates: start: 20181213, end: 20190103
  57. ACETAMINOPHEN. [Concomitant]
     Active Substance: ACETAMINOPHEN
     Dosage: 325 MG, Q4H (TABLET)
     Route: 048
     Dates: start: 20190107, end: 20190107
  58. ALBUMIN [Concomitant]
     Active Substance: ALBUMIN HUMAN
     Indication: SUPPLEMENTATION THERAPY
     Dosage: 25 G, ONCE/SINGLE
     Route: 042
     Dates: start: 20190104
  59. CYPROHEPTADINE. [Concomitant]
     Active Substance: CYPROHEPTADINE
     Indication: PRODUCT USED FOR UNKNOWN INDICATION
     Dosage: UNK
     Route: 065
  60. NEURONTIN [Concomitant]
     Active Substance: GABAPENTIN
     Indication: PRODUCT USED FOR UNKNOWN INDICATION
     Dosage: UNK
     Route: 065
  61. KYMRIAH [Suspect]
     Active Substance: TISAGENLECLEUCEL
     Indication: B-CELL TYPE ACUTE LEUKAEMIA
     Dosage: 2.3X10E6 CAR T-CELLS/KG BODY WEIGHT
     Route: 041
     Dates: start: 20181231
  62. KETAMINE [Concomitant]
     Active Substance: KETAMINE
     Indication: PRODUCT USED FOR UNKNOWN INDICATION
     Dosage: UNK
     Route: 041
  63. DIPHENHYDRAMINE. [Concomitant]
     Active Substance: DIPHENHYDRAMINE
     Indication: NAUSEA
     Dosage: 15 MG, PRN (33 MG, ONCE/SINGLE)
     Route: 042
     Dates: start: 20190103
  64. NALBUPHINE [Concomitant]
     Active Substance: NALBUPHINE
     Indication: PRODUCT USED FOR UNKNOWN INDICATION
     Dosage: 3.5 MG, Q6H
     Route: 042
  65. ATIVAN [Concomitant]
     Active Substance: LORAZEPAM
     Indication: VOMITING
  66. HYDROXYZINE [Concomitant]
     Active Substance: HYDROXYZINE HYDROCHLORIDE
     Indication: VOMITING
  67. CEFEPIME [Concomitant]
     Active Substance: CEFEPIME HYDROCHLORIDE
     Indication: ANTIBIOTIC THERAPY
     Dosage: 1690 MG, Q12H
     Route: 042
     Dates: start: 20190107
  68. VANCOMYCIN [Concomitant]
     Active Substance: VANCOMYCIN
     Indication: PRODUCT USED FOR UNKNOWN INDICATION
     Dosage: 320 MG, Q12H
     Route: 042
     Dates: start: 20081227
  69. SPIRONOLACTONE. [Concomitant]
     Active Substance: SPIRONOLACTONE
     Indication: DIURETIC THERAPY
     Dosage: 35 MG, Q12 Q FRI, SAT
     Route: 048
     Dates: start: 20190109
  70. INOTUZUMAB [Concomitant]
     Active Substance: INOTUZUMAB OZOGAMICIN
     Indication: CHEMOTHERAPY
     Route: 065
  71. LIDOCAINE. [Concomitant]
     Active Substance: LIDOCAINE
     Indication: PAIN
     Dosage: 1 DF, Q24H
     Route: 062
     Dates: start: 20181228
  72. LORAZEPAM. [Concomitant]
     Active Substance: LORAZEPAM
     Dosage: 0.75 MG, Q6H
     Route: 042
     Dates: start: 20190107
  73. FAMOTIDINE. [Concomitant]
     Active Substance: FAMOTIDINE
     Indication: PROPHYLAXIS
     Dosage: 10 MG, Q12H
     Route: 042
  74. SENNA [Concomitant]
     Active Substance: SENNA LEAF\SENNOSIDES\SENNOSIDES A AND B
     Indication: CONSTIPATION
     Dosage: 7.5 ML, Q12H
     Route: 065
  75. URSODIOL. [Concomitant]
     Active Substance: URSODIOL
     Indication: PROPHYLAXIS
     Dosage: 300 MG, Q12H
     Route: 048
     Dates: start: 20181217, end: 20190107
  76. HYDROCORTISONE. [Concomitant]
     Active Substance: HYDROCORTISONE
     Indication: PRODUCT USED FOR UNKNOWN INDICATION
     Dosage: 7.5 MG, Q24H
     Route: 048
  77. REGLAN [Concomitant]
     Active Substance: METOCLOPRAMIDE HYDROCHLORIDE
     Indication: VOMITING

REACTIONS (33)
  - Malignant neoplasm progression [Fatal]
  - Cytokine release syndrome [Recovered/Resolved]
  - Pericardial effusion [Unknown]
  - Bone pain [Unknown]
  - Sinus tachycardia [Unknown]
  - White blood cell count decreased [Unknown]
  - Electrocardiogram ST segment abnormal [Unknown]
  - Neutrophil count decreased [Unknown]
  - B-cell type acute leukaemia [Fatal]
  - Hypotension [Recovering/Resolving]
  - Stress [Unknown]
  - Chest discomfort [Unknown]
  - Headache [Unknown]
  - Cardiac dysfunction [Unknown]
  - Electrocardiogram QRS complex abnormal [Unknown]
  - Dizziness [Unknown]
  - Asthenia [Unknown]
  - Hypoxia [Unknown]
  - Left ventricular dysfunction [Not Recovered/Not Resolved]
  - Chest pain [Unknown]
  - Alopecia [Unknown]
  - Haematocrit decreased [Unknown]
  - Pyrexia [Recovered/Resolved]
  - Therapy non-responder [Not Recovered/Not Resolved]
  - Electrocardiogram T wave abnormal [Unknown]
  - Myalgia [Unknown]
  - Haemoglobin decreased [Unknown]
  - Photophobia [Unknown]
  - Tachycardia [Unknown]
  - Tachypnoea [Unknown]
  - Remission not achieved [Not Recovered/Not Resolved]
  - Electrocardiogram QT prolonged [Unknown]
  - Nausea [Unknown]

NARRATIVE: CASE EVENT DATE: 20181231
